FAERS Safety Report 21610861 (Version 1)
Quarter: 2022Q4

REPORT INFORMATION
  Report Type: Spontaneous
  Country: US (occurrence: US)
  Receive Date: 20221117
  Receipt Date: 20221117
  Transmission Date: 20230113
  Serious: No
  Sender: FDA-Public Use
  Company Number: US-ORGANON-O2211USA001295

PATIENT
  Age: 32 Year
  Sex: Female
  Weight: 112.47 kg

DRUGS (1)
  1. NEXPLANON [Suspect]
     Active Substance: ETONOGESTREL
     Dosage: 1 IMPLANT (68 MG) IN LEFT UPPER ARM
     Route: 059
     Dates: start: 201912

REACTIONS (1)
  - Complication associated with device [Recovered/Resolved]
